FAERS Safety Report 17822951 (Version 2)
Quarter: 2020Q2

REPORT INFORMATION
  Report Type: Spontaneous
  Country: US (occurrence: US)
  Receive Date: 20200526
  Receipt Date: 20200617
  Transmission Date: 20200714
  Serious: Yes (Other)
  Sender: FDA-Public Use
  Company Number: US-EMD SERONO-7012137

PATIENT
  Age: 53 Year
  Sex: Female

DRUGS (2)
  1. REBIF [Suspect]
     Active Substance: INTERFERON BETA-1A
     Route: 058
     Dates: start: 20100521, end: 20110422
  2. REBIF [Suspect]
     Active Substance: INTERFERON BETA-1A
     Indication: MULTIPLE SCLEROSIS
     Dosage: ONE MONTH
     Route: 058
     Dates: start: 2004, end: 2004

REACTIONS (8)
  - Platelet count decreased [Recovering/Resolving]
  - Arthralgia [Unknown]
  - Lymphadenopathy [Unknown]
  - Injection site reaction [Recovering/Resolving]
  - Influenza like illness [Not Recovered/Not Resolved]
  - Neuralgia [Unknown]
  - Fatigue [Unknown]
  - Neck pain [Unknown]

NARRATIVE: CASE EVENT DATE: 2010
